FAERS Safety Report 17684399 (Version 1)
Quarter: 2020Q2

REPORT INFORMATION
  Report Type: Spontaneous
  Country: US (occurrence: US)
  Receive Date: 20200418
  Receipt Date: 20200418
  Transmission Date: 20200714
  Serious: No
  Sender: FDA-Public Use
  Company Number: None

PATIENT
  Age: 67 Year
  Sex: Female
  Weight: 60.75 kg

DRUGS (8)
  1. CLOBETASOL [Suspect]
     Active Substance: CLOBETASOL
     Indication: LICHEN SCLEROSUS
     Route: 061
     Dates: start: 20191213, end: 20200120
  2. NEXIUM [Concomitant]
     Active Substance: ESOMEPRAZOLE MAGNESIUM
  3. VITAMIN D [Concomitant]
     Active Substance: VITAMIN D NOS
  4. PROBIOTIC [Concomitant]
     Active Substance: PROBIOTICS NOS
  5. CLOBETASOL [Suspect]
     Active Substance: CLOBETASOL
     Indication: LICHEN SCLEROSUS
     Route: 061
     Dates: start: 20191228, end: 20200120
  6. LISINOPRIL. [Concomitant]
     Active Substance: LISINOPRIL
  7. HYDROCHLOROTHIAZIDE. [Concomitant]
     Active Substance: HYDROCHLOROTHIAZIDE
  8. MULTIVITAMIN [Concomitant]
     Active Substance: VITAMINS

REACTIONS (5)
  - Hot flush [None]
  - Erythema [None]
  - Steroid withdrawal syndrome [None]
  - Rash [None]
  - Skin burning sensation [None]

NARRATIVE: CASE EVENT DATE: 20200108
